FAERS Safety Report 14603930 (Version 1)
Quarter: 2018Q1

REPORT INFORMATION
  Report Type: Other
  Country: CA (occurrence: US)
  Receive Date: 20180306
  Receipt Date: 20180306
  Transmission Date: 20180509
  Serious: No
  Sender: FDA-Public Use
  Company Number: US-APOLLO HEALTH AND BEAUTY CARE INC.-2043045

PATIENT

DRUGS (1)
  1. PARENTS CHOICE ADVANCED HEALING [Suspect]
     Active Substance: PETROLATUM

REACTIONS (1)
  - Rash [None]
